FAERS Safety Report 24721456 (Version 2)
Quarter: 2025Q1

REPORT INFORMATION
  Report Type: Report from Study
  Country: US (occurrence: US)
  Receive Date: 20241211
  Receipt Date: 20250106
  Transmission Date: 20250409
  Serious: Yes (Other)
  Sender: ALEXION PHARMACEUTICALS
  Company Number: US-AstraZeneca-CH-00760189A

PATIENT

DRUGS (60)
  1. TEZEPELUMAB [Suspect]
     Active Substance: TEZEPELUMAB
     Indication: Asthma
     Dosage: 210 MILLIGRAM, Q4W
  2. TEZEPELUMAB [Suspect]
     Active Substance: TEZEPELUMAB
     Dosage: 210 MILLIGRAM, Q4W
     Route: 058
  3. TEZEPELUMAB [Suspect]
     Active Substance: TEZEPELUMAB
     Dosage: 210 MILLIGRAM, Q4W
  4. TEZEPELUMAB [Suspect]
     Active Substance: TEZEPELUMAB
     Dosage: 210 MILLIGRAM, Q4W
     Route: 058
  5. SYMBICORT [Suspect]
     Active Substance: BUDESONIDE\FORMOTEROL FUMARATE DIHYDRATE
     Dosage: 160 MILLIGRAM, BID
     Route: 065
  6. SYMBICORT [Suspect]
     Active Substance: BUDESONIDE\FORMOTEROL FUMARATE DIHYDRATE
     Dosage: 160 MILLIGRAM, BID
     Route: 065
  7. SYMBICORT [Suspect]
     Active Substance: BUDESONIDE\FORMOTEROL FUMARATE DIHYDRATE
     Dosage: 160 MILLIGRAM, BID
     Route: 065
  8. SYMBICORT [Suspect]
     Active Substance: BUDESONIDE\FORMOTEROL FUMARATE DIHYDRATE
     Dosage: 160 MILLIGRAM, BID
     Route: 065
  9. AIRSUPRA [Suspect]
     Active Substance: ALBUTEROL SULFATE\BUDESONIDE
  10. AIRSUPRA [Suspect]
     Active Substance: ALBUTEROL SULFATE\BUDESONIDE
  11. AIRSUPRA [Suspect]
     Active Substance: ALBUTEROL SULFATE\BUDESONIDE
  12. AIRSUPRA [Suspect]
     Active Substance: ALBUTEROL SULFATE\BUDESONIDE
  13. INFLUENZA A (H1N1) 2009 MONOVALENT VACCINE [Suspect]
     Active Substance: INFLUENZA A VIRUS A/CALIFORNIA/7/2009(H1N1)-LIKE ANTIGEN (FORMALDEHYDE INACTIVATED)\INFLUENZA A VIRU
     Route: 065
  14. INFLUENZA A (H1N1) 2009 MONOVALENT VACCINE [Suspect]
     Active Substance: INFLUENZA A VIRUS A/CALIFORNIA/7/2009(H1N1)-LIKE ANTIGEN (FORMALDEHYDE INACTIVATED)\INFLUENZA A VIRU
     Route: 065
  15. INFLUENZA A (H1N1) 2009 MONOVALENT VACCINE [Suspect]
     Active Substance: INFLUENZA A VIRUS A/CALIFORNIA/7/2009(H1N1)-LIKE ANTIGEN (FORMALDEHYDE INACTIVATED)\INFLUENZA A VIRU
     Route: 065
  16. INFLUENZA A (H1N1) 2009 MONOVALENT VACCINE [Suspect]
     Active Substance: INFLUENZA A VIRUS A/CALIFORNIA/7/2009(H1N1)-LIKE ANTIGEN (FORMALDEHYDE INACTIVATED)\INFLUENZA A VIRU
     Route: 065
  17. ALBUTEROL [Concomitant]
     Active Substance: ALBUTEROL
     Indication: Dyspnoea
     Route: 065
  18. ALBUTEROL [Concomitant]
     Active Substance: ALBUTEROL
     Indication: Chest discomfort
     Route: 065
  19. ALBUTEROL [Concomitant]
     Active Substance: ALBUTEROL
     Indication: Wheezing
  20. ALBUTEROL SULFATE [Concomitant]
     Active Substance: ALBUTEROL SULFATE
     Route: 065
  21. ALBUTEROL SULFATE [Concomitant]
     Active Substance: ALBUTEROL SULFATE
     Route: 065
  22. AZULFIDINE [Concomitant]
     Active Substance: SULFASALAZINE
     Dosage: 4 DOSAGE FORM, QD
     Route: 048
  23. AZULFIDINE [Concomitant]
     Active Substance: SULFASALAZINE
     Dosage: 4 DOSAGE FORM, QD
  24. BENICAR [Concomitant]
     Active Substance: OLMESARTAN MEDOXOMIL
     Dosage: 1 DOSAGE FORM, EVERY MORNING
     Route: 048
  25. BENICAR [Concomitant]
     Active Substance: OLMESARTAN MEDOXOMIL
     Dosage: 1 DOSAGE FORM, EVERY MORNING
  26. CIPRO [Concomitant]
     Active Substance: CIPROFLOXACIN HYDROCHLORIDE
     Dosage: 1 DOSAGE FORM, Q12H
     Route: 048
  27. CIPRO [Concomitant]
     Active Substance: CIPROFLOXACIN HYDROCHLORIDE
     Dosage: 1 DOSAGE FORM, Q12H
  28. DOXYCYCLINE [Concomitant]
     Active Substance: DOXYCYCLINE
     Dosage: 100 MILLIGRAM, BID
     Route: 065
  29. DOXYCYCLINE [Concomitant]
     Active Substance: DOXYCYCLINE
     Dosage: 100 MILLIGRAM, BID
     Route: 065
  30. FOLVITE [Concomitant]
     Active Substance: FOLIC ACID
     Dosage: 1 DOSAGE FORM, EVERY MORNING
     Route: 048
  31. FOLVITE [Concomitant]
     Active Substance: FOLIC ACID
     Dosage: 1 DOSAGE FORM, EVERY MORNING
  32. FLONASE [Concomitant]
     Active Substance: FLUTICASONE PROPIONATE
     Route: 045
  33. FLONASE [Concomitant]
     Active Substance: FLUTICASONE PROPIONATE
  34. KEVZARA [Concomitant]
     Active Substance: SARILUMAB
     Route: 065
  35. KEVZARA [Concomitant]
     Active Substance: SARILUMAB
     Route: 065
  36. LONITEN [Concomitant]
     Active Substance: MINOXIDIL
     Dosage: 4 DOSAGE FORM, QD
     Route: 048
  37. LONITEN [Concomitant]
     Active Substance: MINOXIDIL
     Dosage: 4 DOSAGE FORM, QD
  38. MOBIC [Concomitant]
     Active Substance: MELOXICAM
     Indication: Rheumatoid arthritis
     Dosage: 1 DOSAGE FORM, EVERY MORNING
     Route: 048
  39. MOBIC [Concomitant]
     Active Substance: MELOXICAM
     Dosage: 1 DOSAGE FORM, EVERY MORNING
  40. PERCOCET [Concomitant]
     Active Substance: ACETAMINOPHEN\OXYCODONE HYDROCHLORIDE
     Dosage: 1 DOSAGE FORM, Q6H
     Route: 048
  41. PERCOCET [Concomitant]
     Active Substance: ACETAMINOPHEN\OXYCODONE HYDROCHLORIDE
     Dosage: 1 DOSAGE FORM, Q6H
  42. PREDNISONE [Concomitant]
     Active Substance: PREDNISONE
     Dosage: 20 MILLIGRAM, BID
     Route: 048
  43. PREDNISONE [Concomitant]
     Active Substance: PREDNISONE
     Dosage: 20 MILLIGRAM, BID
  44. PREDNISONE [Concomitant]
     Active Substance: PREDNISONE
     Dosage: 20 MILLIGRAM, QD
  45. PREDNISONE [Concomitant]
     Active Substance: PREDNISONE
     Dosage: 20 MILLIGRAM, QD
     Route: 048
  46. PREDNISONE [Concomitant]
     Active Substance: PREDNISONE
     Dosage: 10 MILLIGRAM, QD
  47. PREDNISONE [Concomitant]
     Active Substance: PREDNISONE
     Dosage: 10 MILLIGRAM, QD
     Route: 048
  48. PREDNISONE [Concomitant]
     Active Substance: PREDNISONE
  49. PREDNISONE [Concomitant]
     Active Substance: PREDNISONE
  50. PREDNISONE [Concomitant]
     Active Substance: PREDNISONE
     Route: 048
  51. SARILUMAB [Concomitant]
     Active Substance: SARILUMAB
     Dosage: 150 MILLIGRAM, Q2W
     Route: 065
  52. SARILUMAB [Concomitant]
     Active Substance: SARILUMAB
     Dosage: 150 MILLIGRAM, Q2W
     Route: 065
  53. SINGULAIR [Concomitant]
     Active Substance: MONTELUKAST SODIUM
     Dosage: 1 DOSAGE FORM, QHS
     Route: 048
  54. SINGULAIR [Concomitant]
     Active Substance: MONTELUKAST SODIUM
     Dosage: 1 DOSAGE FORM, QHS
  55. TOPROL XL [Concomitant]
     Active Substance: METOPROLOL SUCCINATE
     Dosage: 1 DOSAGE FORM, QD
     Route: 048
  56. TOPROL XL [Concomitant]
     Active Substance: METOPROLOL SUCCINATE
     Dosage: 1 DOSAGE FORM, QD
  57. TRELEGY ELLIPTA [Concomitant]
     Active Substance: FLUTICASONE FUROATE\UMECLIDINIUM BROMIDE\VILANTEROL TRIFENATATE
  58. TRELEGY ELLIPTA [Concomitant]
     Active Substance: FLUTICASONE FUROATE\UMECLIDINIUM BROMIDE\VILANTEROL TRIFENATATE
  59. XOPENEX [Concomitant]
     Active Substance: LEVALBUTEROL HYDROCHLORIDE
     Route: 065
  60. XOPENEX [Concomitant]
     Active Substance: LEVALBUTEROL HYDROCHLORIDE
     Route: 065

REACTIONS (20)
  - Prostate cancer [Unknown]
  - Weight decreased [Unknown]
  - Dyspnoea [Unknown]
  - Chest discomfort [Unknown]
  - Cough [Unknown]
  - Wheezing [Unknown]
  - Mobility decreased [Unknown]
  - Dyspnoea exertional [Unknown]
  - Obesity [Unknown]
  - Nasal congestion [Unknown]
  - Limb injury [Unknown]
  - Obstructive airways disorder [Unknown]
  - Total lung capacity abnormal [Recovering/Resolving]
  - Arthritis [Unknown]
  - Rhinitis [Unknown]
  - Productive cough [Unknown]
  - FEV1/FVC ratio decreased [Unknown]
  - Dry skin [Unknown]
  - Condition aggravated [Unknown]
  - Product dose omission issue [Unknown]
